FAERS Safety Report 8050226-3 (Version None)
Quarter: 2012Q1

REPORT INFORMATION
  Report Type: 
  Country: None (occurrence: None)
  Receive Date: 20120117
  Receipt Date: 20120109
  Transmission Date: 20120608
  Serious: Yes (Disabling, Other)
  Sender: FDA-Public Use
  Company Number: PHFR2011IE01832

PATIENT
  Sex: Male
  Weight: 90 kg

DRUGS (13)
  1. BISOPROLOL FUMARATE [Concomitant]
     Indication: TACHYCARDIA
     Dosage: 5 MG, UNK
     Route: 048
  2. CLOZARIL [Suspect]
     Dosage: 100 MG MORNING AND 300 MG NOCTE
     Dates: start: 20110222
  3. CLOZARIL [Suspect]
     Dosage: 225 MG / NOCTE
     Route: 048
     Dates: start: 20120105
  4. LEVOTHYROXINE SODIUM [Concomitant]
     Indication: BLOOD THYROID STIMULATING HORMONE ABNORMAL
     Dosage: 50 UG, UNK
     Route: 048
  5. MOVIPREP [Concomitant]
     Indication: CONSTIPATION
     Dosage: UNK UKN, UNK
     Route: 048
  6. CLOZARIL [Suspect]
     Dosage: 350 MG MORNING AND 175 MG NOCTE
  7. SERTRALINE HYDROCHLORIDE [Suspect]
     Dosage: UNK UKN, UNK
     Route: 048
     Dates: end: 20110222
  8. ATORVASTATIN [Concomitant]
     Indication: HYPERCHOLESTEROLAEMIA
     Dosage: 10 MG, UNK
     Route: 048
  9. AMISULPRIDE [Concomitant]
     Indication: SCHIZOPHRENIA
     Dosage: 100 MG, UNK
     Route: 048
  10. ARIPIPRAZOLE [Concomitant]
     Indication: SCHIZOPHRENIA
     Dosage: 10 MG, UNK
     Route: 048
  11. VALPROATE SODIUM [Concomitant]
     Indication: CONVULSION
     Dosage: 1200 MG, UNK
     Route: 048
  12. CLOZARIL [Suspect]
     Indication: SCHIZOPHRENIA
     Dosage: 250 MG / NOCTURNAL
     Route: 048
     Dates: start: 20060821
  13. OMEGA-3 FATTY ACIDS [Concomitant]
     Indication: MENTAL DISORDER
     Dosage: 1 G, BID

REACTIONS (8)
  - ORCHITIS [None]
  - NEPHRITIS [None]
  - RENAL IMPAIRMENT [None]
  - URINARY INCONTINENCE [None]
  - HYDRONEPHROSIS [None]
  - URINARY RETENTION [None]
  - EPIDIDYMAL INFECTION [None]
  - DRUG INTERACTION [None]
